FAERS Safety Report 12449416 (Version 1)
Quarter: 2016Q2

REPORT INFORMATION
  Report Type: Spontaneous
  Country: GR (occurrence: GR)
  Receive Date: 20160608
  Receipt Date: 20160608
  Transmission Date: 20160815
  Serious: Yes (Other)
  Sender: FDA-Public Use
  Company Number: PHHY2016GR075628

PATIENT
  Sex: Female
  Weight: 2.5 kg

DRUGS (1)
  1. DEFERASIROX [Suspect]
     Active Substance: DEFERASIROX
     Indication: FOETAL EXPOSURE DURING PREGNANCY
     Dosage: 30 MG/KG BW (MOTHER)
     Route: 064

REACTIONS (2)
  - Foetal exposure during pregnancy [Unknown]
  - Pulmonary dysmaturity syndrome [Unknown]
